FAERS Safety Report 8360408-9 (Version None)
Quarter: 2012Q1

REPORT INFORMATION
  Report Type: 
  Country: None (occurrence: None)
  Receive Date: 20120323
  Receipt Date: 20110419
  Transmission Date: 20120608
  Serious: Yes (Other)
  Sender: FDA-Public Use
  Company Number: 163-21880-11042655

PATIENT
  Sex: Female

DRUGS (1)
  1. REVLIMID [Suspect]
     Indication: MULTIPLE MYELOMA
     Dosage: 25 MG, 1 IN 1 D, PO
     Route: 048
     Dates: start: 20070801, end: 20070101

REACTIONS (7)
  - DECREASED APPETITE [None]
  - THROMBOSIS [None]
  - MEMORY IMPAIRMENT [None]
  - GAIT DISTURBANCE [None]
  - FALL [None]
  - DIZZINESS [None]
  - DIARRHOEA [None]
